FAERS Safety Report 12056643 (Version 2)
Quarter: 2016Q1

REPORT INFORMATION
  Report Type: Spontaneous
  Country: NZ (occurrence: NZ)
  Receive Date: 20160210
  Receipt Date: 20160211
  Transmission Date: 20160526
  Serious: Yes (Other)
  Sender: FDA-Public Use
  Company Number: NZ-ROCHE-1708361

PATIENT

DRUGS (1)
  1. CELLCEPT [Suspect]
     Active Substance: MYCOPHENOLATE MOFETIL\MYCOPHENOLATE MOFETIL HYDROCHLORIDE
     Indication: TRANSPLANT
     Route: 065

REACTIONS (2)
  - Diarrhoea [Unknown]
  - Transplant rejection [Unknown]

NARRATIVE: CASE EVENT DATE: 201512
